FAERS Safety Report 11126138 (Version 2)
Quarter: 2015Q2

REPORT INFORMATION
  Report Type: Spontaneous
  Country: NL (occurrence: NL)
  Receive Date: 20150520
  Receipt Date: 20150526
  Transmission Date: 20150821
  Serious: Yes (Death, Other)
  Sender: FDA-Public Use
  Company Number: NL-ASTELLAS-2015EU005715

PATIENT
  Age: 86 Year
  Sex: Male

DRUGS (1)
  1. XTANDI [Suspect]
     Active Substance: ENZALUTAMIDE
     Indication: PRODUCT USED FOR UNKNOWN INDICATION
     Dosage: UNK UNK, 4 CAPSULES A DAY
     Route: 048
     Dates: start: 20150317

REACTIONS (13)
  - Confusional state [Unknown]
  - Feeling cold [Unknown]
  - Secretion discharge [Unknown]
  - Dysphagia [Unknown]
  - Urinary incontinence [Unknown]
  - Cough [Unknown]
  - Intentional product misuse [Unknown]
  - Product size issue [Unknown]
  - Off label use [Unknown]
  - Chills [Unknown]
  - Drug intolerance [Unknown]
  - Death [Fatal]
  - Dysphonia [Unknown]

NARRATIVE: CASE EVENT DATE: 20150318
